FAERS Safety Report 23066231 (Version 2)
Quarter: 2023Q4

REPORT INFORMATION
  Report Type: Spontaneous
  Country: PL (occurrence: PL)
  Receive Date: 20231015
  Receipt Date: 20231118
  Transmission Date: 20240109
  Serious: Yes (Other)
  Sender: FDA-Public Use
  Company Number: PL-AMGEN-POLSP2023174971

PATIENT
  Age: 57 Year
  Sex: Female
  Weight: 69 kg

DRUGS (4)
  1. LENALIDOMIDE [Suspect]
     Active Substance: LENALIDOMIDE
     Indication: Plasma cell myeloma
     Dosage: UNK
     Route: 065
  2. DARBEPOETIN ALFA [Suspect]
     Active Substance: DARBEPOETIN ALFA
     Indication: Anaemia
     Dosage: UNK
     Route: 065
  3. DEXAMETHASONE [Suspect]
     Active Substance: DEXAMETHASONE
     Indication: Plasma cell myeloma
     Dosage: UNK
     Route: 065
  4. KYPROLIS [Suspect]
     Active Substance: CARFILZOMIB
     Indication: Plasma cell myeloma
     Dosage: 27 MILLIGRAM/SQ. METER
     Route: 065
     Dates: end: 202104

REACTIONS (4)
  - Thrombocytopenia [Unknown]
  - Hypogammaglobulinaemia [Unknown]
  - Anaemia [Unknown]
  - Infection [Unknown]
